FAERS Safety Report 13706125 (Version 1)
Quarter: 2017Q2

REPORT INFORMATION
  Report Type: Spontaneous
  Country: RU (occurrence: RU)
  Receive Date: 20170630
  Receipt Date: 20170630
  Transmission Date: 20170830
  Serious: Yes (Other)
  Sender: FDA-Public Use
  Company Number: RU-ALEXION PHARMACEUTICALS INC.-A201707165

PATIENT
  Age: 30 Year
  Sex: Female

DRUGS (3)
  1. SOLIRIS [Suspect]
     Active Substance: ECULIZUMAB
     Indication: PAROXYSMAL NOCTURNAL HAEMOGLOBINURIA
     Dosage: UNK
     Route: 042
     Dates: start: 201210, end: 201404
  2. SOLIRIS [Suspect]
     Active Substance: ECULIZUMAB
     Indication: OFF LABEL USE
  3. SOLIRIS [Suspect]
     Active Substance: ECULIZUMAB
     Indication: BONE MARROW TRANSPLANT
     Dosage: UNK
     Route: 042
     Dates: start: 2014

REACTIONS (7)
  - Chronic kidney disease [Unknown]
  - Paroxysmal nocturnal haemoglobinuria [Unknown]
  - Intravascular haemolysis [Unknown]
  - Pulmonary embolism [Unknown]
  - Pulmonary hypertension [Unknown]
  - Aplastic anaemia [Unknown]
  - Disease progression [Unknown]

NARRATIVE: CASE EVENT DATE: 201406
